FAERS Safety Report 15613828 (Version 1)
Quarter: 2018Q4

REPORT INFORMATION
  Report Type: Spontaneous
  Country: US (occurrence: US)
  Receive Date: 20181113
  Receipt Date: 20181113
  Transmission Date: 20190205
  Serious: Yes (Hospitalization)
  Sender: FDA-Public Use
  Company Number: US-GUERBET-US-20180282

PATIENT
  Age: 76 Year
  Sex: Female

DRUGS (3)
  1. MITOMYCIN C [Concomitant]
     Active Substance: MITOMYCIN
     Indication: TRANSCATHETER ARTERIAL CHEMOEMBOLISATION
     Route: 065
     Dates: start: 20181017, end: 20181017
  2. LIPIODOL [Suspect]
     Active Substance: ETHIODIZED OIL
     Indication: TRANSCATHETER ARTERIAL CHEMOEMBOLISATION
     Route: 065
     Dates: start: 20181017, end: 20181017
  3. DOXORUBICIN [Concomitant]
     Active Substance: DOXORUBICIN
     Indication: TRANSCATHETER ARTERIAL CHEMOEMBOLISATION
     Route: 065
     Dates: start: 20181017, end: 20181017

REACTIONS (3)
  - Hyponatraemia [Recovered/Resolved]
  - Post embolisation syndrome [Recovered/Resolved]
  - Ascites [Recovered/Resolved]

NARRATIVE: CASE EVENT DATE: 20181019
